FAERS Safety Report 15500131 (Version 1)
Quarter: 2018Q4

REPORT INFORMATION
  Report Type: Spontaneous
  Country: US (occurrence: US)
  Receive Date: 20181015
  Receipt Date: 20181015
  Transmission Date: 20190205
  Serious: No
  Sender: FDA-Public Use
  Company Number: US-COLLEGIUM PHARMACEUTICAL, INC.-US-2018DEP000739

PATIENT

DRUGS (4)
  1. OXYCODONE [Concomitant]
     Active Substance: OXYCODONE
     Indication: PAIN
     Dosage: 10 MG, 5 TIMES DAILY
     Route: 048
     Dates: start: 20170721
  2. NUCYNTA ER [Suspect]
     Active Substance: TAPENTADOL HYDROCHLORIDE
     Indication: MUSCULOSKELETAL PAIN
     Dosage: 200 MG, UNK
     Route: 048
     Dates: start: 20170726, end: 20170726
  3. NUCYNTA ER [Suspect]
     Active Substance: TAPENTADOL HYDROCHLORIDE
     Indication: NECK PAIN
     Dosage: 100 MG, BID
     Route: 048
     Dates: start: 20170725, end: 20170725
  4. NUCYNTA ER [Suspect]
     Active Substance: TAPENTADOL HYDROCHLORIDE
     Indication: PAIN IN EXTREMITY
     Dosage: 100 MG, BID
     Route: 048
     Dates: start: 20170727, end: 20170729

REACTIONS (6)
  - Fall [Recovered/Resolved]
  - Drug ineffective [Unknown]
  - Sleep disorder [Recovered/Resolved]
  - Disorientation [Unknown]
  - Injury [Recovered/Resolved]
  - Asthenopia [Unknown]

NARRATIVE: CASE EVENT DATE: 20170725
